FAERS Safety Report 9499557 (Version 1)
Quarter: 2013Q3

REPORT INFORMATION
  Report Type: Spontaneous
  Country: US (occurrence: US)
  Receive Date: 20130905
  Receipt Date: 20130905
  Transmission Date: 20140515
  Serious: Yes (Other)
  Sender: FDA-Public Use
  Company Number: US-BRISTOL-MYERS SQUIBB COMPANY-19231620

PATIENT
  Sex: Female

DRUGS (1)
  1. YERVOY [Suspect]
     Dosage: 1DF=4 DOSES.?INJ.

REACTIONS (3)
  - Herpes simplex [Unknown]
  - Cough [Unknown]
  - Lymphadenopathy [Unknown]
